FAERS Safety Report 6011475-9 (Version None)
Quarter: 2008Q4

REPORT INFORMATION
  Report Type: 
  Country: None (occurrence: None)
  Receive Date: 20081218
  Receipt Date: 20071127
  Transmission Date: 20090506
  Serious: No
  Sender: FDA-Public Use
  Company Number: US-ABBOTT-07P-163-0426680-00

PATIENT
  Sex: Female
  Weight: 80.358 kg

DRUGS (1)
  1. MERIDIA [Suspect]
     Indication: WEIGHT CONTROL
     Route: 048
     Dates: start: 20071119, end: 20071123

REACTIONS (7)
  - DYSPHONIA [None]
  - HEADACHE [None]
  - LIVEDO RETICULARIS [None]
  - NASAL CONGESTION [None]
  - RHINORRHOEA [None]
  - SINUS CONGESTION [None]
  - SINUS HEADACHE [None]
